FAERS Safety Report 18061336 (Version 1)
Quarter: 2020Q3

REPORT INFORMATION
  Report Type: Spontaneous
  Country: AU (occurrence: AU)
  Receive Date: 20200723
  Receipt Date: 20200723
  Transmission Date: 20201103
  Serious: Yes (Hospitalization, Other)
  Sender: FDA-Public Use
  Company Number: AU-NALPROPION PHARMACEUTICALS INC.-2020-010647

PATIENT

DRUGS (5)
  1. PHENTERMINE. [Suspect]
     Active Substance: PHENTERMINE
     Indication: PRODUCT USED FOR UNKNOWN INDICATION
     Dosage: 2 YEARS AGO ON AN UNKNOWN DATE
     Route: 065
  2. OROXINE [Concomitant]
     Active Substance: LEVOTHYROXINE SODIUM
     Indication: PRODUCT USED FOR UNKNOWN INDICATION
     Dosage: UNK
  3. MERSYNOFEN [Concomitant]
     Indication: MIGRAINE
     Dosage: UNK
  4. VENTOLIN MA [Concomitant]
     Indication: ASTHMA
     Dosage: UNK
  5. CONTRAVE [Suspect]
     Active Substance: BUPROPION HYDROCHLORIDE\NALTREXONE HYDROCHLORIDE
     Indication: WEIGHT DECREASED
     Dosage: UNK
     Route: 065

REACTIONS (8)
  - Nausea [Unknown]
  - Abdominal pain upper [Recovered/Resolved]
  - Biliary colic [Unknown]
  - Cholecystectomy [Recovered/Resolved]
  - Vomiting projectile [Unknown]
  - Retching [Unknown]
  - Cholelithiasis [Recovered/Resolved]
  - Insomnia [Unknown]
